FAERS Safety Report 21571570 (Version 2)
Quarter: 2023Q2

REPORT INFORMATION
  Report Type: Spontaneous
  Country: JP (occurrence: JP)
  Receive Date: 20221109
  Receipt Date: 20230517
  Transmission Date: 20230722
  Serious: Yes (Death, Other)
  Sender: FDA-Public Use
  Company Number: JP-GSKJP-JP2022JPN163619AA

PATIENT

DRUGS (4)
  1. MEPOLIZUMAB [Suspect]
     Active Substance: MEPOLIZUMAB
     Indication: Asthma
     Dosage: 100 MG
     Dates: start: 20161010, end: 20180906
  2. THEO-DUR [Concomitant]
     Active Substance: THEOPHYLLINE ANHYDROUS
     Indication: Asthma
     Dosage: 400 MG, 1D
     Route: 048
     Dates: start: 20110929, end: 20190804
  3. SPIRIVA [Concomitant]
     Active Substance: TIOTROPIUM BROMIDE MONOHYDRATE
     Indication: Asthma
     Dosage: 2 DF, 1D
     Route: 055
     Dates: start: 20120209, end: 20190804
  4. SYMBICORT [Concomitant]
     Active Substance: BUDESONIDE\FORMOTEROL FUMARATE DIHYDRATE
     Indication: Asthma
     Dosage: 6 DF
     Route: 055
     Dates: start: 20150820, end: 20190804

REACTIONS (4)
  - Rectal cancer [Fatal]
  - Decreased appetite [Unknown]
  - Metastases to liver [Fatal]
  - Metastases to lung [Fatal]

NARRATIVE: CASE EVENT DATE: 20180801
